FAERS Safety Report 8545423-4 (Version None)
Quarter: 2012Q3

REPORT INFORMATION
  Report Type: 
  Country: None (occurrence: None)
  Receive Date: 20120727
  Receipt Date: 20111110
  Transmission Date: 20120928
  Serious: No
  Sender: FDA-Public Use
  Company Number: US-ASTRAZENECA-2011SE66723

PATIENT
  Age: 36 Year
  Sex: Male
  Weight: 72.6 kg

DRUGS (6)
  1. TRAZIDONE [Concomitant]
  2. NEURONTIN [Concomitant]
  3. LAMICTAL [Concomitant]
  4. XANAX [Concomitant]
  5. SEROQUEL [Suspect]
     Indication: DEPRESSION
     Route: 048
  6. SEROQUEL [Suspect]
     Route: 048

REACTIONS (5)
  - MALAISE [None]
  - DRUG DOSE OMISSION [None]
  - INSOMNIA [None]
  - VOMITING [None]
  - DIARRHOEA [None]
